FAERS Safety Report 5679947-4 (Version None)
Quarter: 2008Q1

REPORT INFORMATION
  Report Type: 
  Country: None (occurrence: None)
  Receive Date: 20080324
  Receipt Date: 20080312
  Transmission Date: 20080703
  Serious: Yes (Other)
  Sender: FDA-Public Use
  Company Number: GXKR2008DE02614

PATIENT
  Sex: Male
  Weight: 87 kg

DRUGS (3)
  1. RAMIPRIL [Suspect]
     Indication: HYPERTENSION
     Dosage: 25MG HCT/5MG RAMIPRIL DAILY, ORAL
     Route: 048
     Dates: start: 20071116, end: 20080305
  2. BISOPROLOL (BISOPROLOL) [Concomitant]
  3. AMLODIPINE [Concomitant]

REACTIONS (5)
  - ASTHENIA [None]
  - DYSPNOEA [None]
  - FACE OEDEMA [None]
  - OEDEMA PERIPHERAL [None]
  - RHINORRHOEA [None]
